APPROVED DRUG PRODUCT: ANISOTROPINE METHYLBROMIDE
Active Ingredient: ANISOTROPINE METHYLBROMIDE
Strength: 50MG
Dosage Form/Route: TABLET;ORAL
Application: A086046 | Product #001
Applicant: WATSON LABORATORIES INC
Approved: Approved Prior to Jan 1, 1982 | RLD: No | RS: No | Type: DISCN